FAERS Safety Report 21064735 (Version 1)
Quarter: 2022Q3

REPORT INFORMATION
  Report Type: Spontaneous
  Country: AU (occurrence: AU)
  Receive Date: 20220711
  Receipt Date: 20220711
  Transmission Date: 20221027
  Serious: Yes (Hospitalization)
  Sender: FDA-Public Use
  Company Number: AU-NOVARTISPH-NVSC2022AU154454

PATIENT
  Age: 54 Year
  Sex: Female

DRUGS (10)
  1. AMANTADINE [Suspect]
     Active Substance: AMANTADINE
     Indication: Product used for unknown indication
     Dosage: UNK
     Route: 065
  2. VENLAFAXINE [Suspect]
     Active Substance: VENLAFAXINE HYDROCHLORIDE
     Indication: Depression
     Dosage: UNK
     Route: 065
  3. VENLAFAXINE [Suspect]
     Active Substance: VENLAFAXINE HYDROCHLORIDE
     Indication: Anxiety
  4. APOMORPHINE [Suspect]
     Active Substance: APOMORPHINE
     Indication: Product used for unknown indication
     Dosage: 8MG/HR (1.6ML FR), 24 HOURS
     Route: 065
  5. APOMORPHINE [Suspect]
     Active Substance: APOMORPHINE
     Dosage: 5MG BOLUS (1ML FR), 24 HOURS
     Route: 065
  6. RASAGILINE [Concomitant]
     Active Substance: RASAGILINE
     Indication: Parkinson^s disease
     Dosage: 1 MG, QD
     Route: 065
  7. STALEVO [Concomitant]
     Active Substance: CARBIDOPA\ENTACAPONE\LEVODOPA
     Indication: Parkinson^s disease
     Dosage: 150 FREQ: X1 (EVERY 3/24) 7- 8 DAY
     Route: 065
  8. CLONAZEPAM [Concomitant]
     Active Substance: CLONAZEPAM
     Indication: Insomnia
     Dosage: UNK, PRN NOCTE
     Route: 065
  9. CABERGOLINE [Concomitant]
     Active Substance: CABERGOLINE
     Indication: Impulse-control disorder
     Dosage: UNK
     Route: 065
  10. PRAMIPEXOLE [Concomitant]
     Active Substance: PRAMIPEXOLE
     Indication: Impulse-control disorder
     Dosage: UNK
     Route: 065

REACTIONS (19)
  - Rib fracture [Unknown]
  - Gait disturbance [Unknown]
  - Dystonia [Unknown]
  - Bradykinesia [Unknown]
  - Musculoskeletal stiffness [Unknown]
  - Paranoia [Unknown]
  - Urinary incontinence [Unknown]
  - Distractibility [Unknown]
  - Constipation [Unknown]
  - Dysphagia [Unknown]
  - Rapid eye movement sleep behaviour disorder [Unknown]
  - Fall [Unknown]
  - Drug eruption [Unknown]
  - Dyskinesia [Unknown]
  - Hallucination, auditory [Unknown]
  - Hallucination [Unknown]
  - Livedo reticularis [Unknown]
  - Therapeutic response shortened [Unknown]
  - Device infusion issue [Unknown]
